FAERS Safety Report 5059438-4 (Version None)
Quarter: 2006Q3

REPORT INFORMATION
  Report Type: 
  Country: None (occurrence: None)
  Receive Date: 20060724
  Receipt Date: 20060714
  Transmission Date: 20061208
  Serious: Yes (Hospitalization)
  Sender: FDA-Public Use
  Company Number: US-KINGPHARMUSA00001-K200600920

PATIENT
  Age: 83 Year
  Sex: Male

DRUGS (10)
  1. ALTACE [Suspect]
     Indication: DIURETIC THERAPY
     Dosage: UNK, UNK
  2. ALTACE [Suspect]
     Dosage: UNK, UNK
  3. FUROSEMIDE [Suspect]
     Indication: DIURETIC THERAPY
     Dosage: UNK, UNK
  4. FUROSEMIDE [Suspect]
     Dosage: UNK, UNK
  5. STUDY DRUG CODE UNBROKEN [Concomitant]
     Indication: PROPHYLAXIS
     Dates: start: 20050305, end: 20050320
  6. STUDY DRUG CODE UNBROKEN [Concomitant]
     Dates: start: 20050401
  7. THIENOPYRIDINES [Concomitant]
  8. ASPIRIN [Concomitant]
  9. AMIODARONE HCL [Concomitant]
  10. AMOXICILLIN [Concomitant]

REACTIONS (9)
  - BRONCHITIS [None]
  - COUGH [None]
  - DEHYDRATION [None]
  - DYSPNOEA [None]
  - ESCHERICHIA INFECTION [None]
  - HYPOTENSION [None]
  - MORAXELLA INFECTION [None]
  - OBSTRUCTIVE AIRWAYS DISORDER [None]
  - SPUTUM CULTURE POSITIVE [None]
